FAERS Safety Report 6355492-8 (Version None)
Quarter: 2009Q3

REPORT INFORMATION
  Report Type: 
  Country: None (occurrence: None)
  Receive Date: 20090914
  Receipt Date: 20090130
  Transmission Date: 20100115
  Serious: No
  Sender: FDA-Public Use
  Company Number: US-ALLERGAN-0901221US

PATIENT
  Sex: Female

DRUGS (2)
  1. FLUOROPLEX [Suspect]
     Indication: SKIN CANCER
     Dosage: UNK, UNKNOWN
     Route: 061
  2. ALDARA [Suspect]
     Indication: SKIN CANCER
     Dosage: DURING THE WEEK

REACTIONS (1)
  - DRUG INEFFECTIVE [None]
